FAERS Safety Report 8843137 (Version 3)
Quarter: 2012Q4

REPORT INFORMATION
  Report Type: 
  Country: US (occurrence: US)
  Receive Date: 20121016
  Receipt Date: 20121228
  Transmission Date: 20130627
  Serious: Yes (Death, Hospitalization)
  Sender: FDA-Public Use
  Company Number: US-B.I. PHARMACEUTICALS,INC./RIDGEFIELD-2012-BP-25550BP

PATIENT
  Age: 91 Year
  Sex: Female
  Weight: 56.25 kg

DRUGS (5)
  1. PRADAXA [Suspect]
     Indication: ATRIAL FIBRILLATION
     Dosage: 300 mg
     Route: 048
     Dates: start: 20110509, end: 20120831
  2. DIABETES PILL [Concomitant]
     Indication: DIABETES MELLITUS
  3. SYNTHROID [Concomitant]
     Indication: HYPOTHYROIDISM
  4. ASPIRIN [Concomitant]
     Dates: end: 2012
  5. PLAVIX [Concomitant]
     Dates: end: 2012

REACTIONS (3)
  - Cerebral haemorrhage [Fatal]
  - Mouth haemorrhage [Unknown]
  - Contusion [Unknown]
